FAERS Safety Report 8486380-9 (Version None)
Quarter: 2012Q3

REPORT INFORMATION
  Report Type: 
  Country: None (occurrence: None)
  Receive Date: 20120703
  Receipt Date: 20120626
  Transmission Date: 20120928
  Serious: Yes (Hospitalization)
  Sender: FDA-Public Use
  Company Number: FR-VIIV HEALTHCARE LIMITED-B0810692A

PATIENT
  Sex: Male

DRUGS (3)
  1. NORVIR [Suspect]
     Indication: HIV INFECTION
     Route: 048
     Dates: start: 20000401
  2. EPIVIR [Suspect]
     Indication: HIV INFECTION
     Route: 048
     Dates: start: 20100212
  3. REYATAZ [Suspect]
     Indication: HIV INFECTION
     Route: 065
     Dates: start: 20070501, end: 20120302

REACTIONS (2)
  - CHOLELITHIASIS [None]
  - BILIARY COLIC [None]
